FAERS Safety Report 19390630 (Version 2)
Quarter: 2021Q3

REPORT INFORMATION
  Report Type: Report from Study
  Country: US (occurrence: US)
  Receive Date: 20210608
  Receipt Date: 20210714
  Transmission Date: 20211014
  Serious: No
  Sender: FDA-Public Use
  Company Number: US-ETON PHARMACEUTICALS, INC-2021ETO000061

PATIENT

DRUGS (1)
  1. ALKINDI SPRINKLE [Suspect]
     Active Substance: HYDROCORTISONE
     Indication: ADRENOGENITAL SYNDROME
     Dosage: 1MG (MORNING), 0.5MG (AFTERNOON), 1MG (EVENING), TID
     Route: 048
     Dates: start: 2021, end: 2021

REACTIONS (5)
  - Cough [Recovered/Resolved]
  - Product use complaint [Unknown]
  - Infantile spitting up [Recovered/Resolved]
  - Incorrect dose administered [Unknown]
  - Choking [Recovered/Resolved]

NARRATIVE: CASE EVENT DATE: 2021
